FAERS Safety Report 17862799 (Version 1)
Quarter: 2020Q2

REPORT INFORMATION
  Report Type: Report from Study
  Country: US (occurrence: US)
  Receive Date: 20200605
  Receipt Date: 20200605
  Transmission Date: 20200714
  Serious: No
  Sender: FDA-Public Use
  Company Number: NVSC2020US155515

PATIENT
  Sex: Female

DRUGS (1)
  1. GILENYA [Suspect]
     Active Substance: FINGOLIMOD HYDROCHLORIDE
     Indication: PRODUCT USED FOR UNKNOWN INDICATION
     Dosage: 0.5 MG, QD
     Route: 065
     Dates: start: 20200602, end: 20200602

REACTIONS (6)
  - Hot flush [Unknown]
  - Musculoskeletal discomfort [Unknown]
  - Headache [Unknown]
  - Somnolence [Unknown]
  - Nausea [Unknown]
  - Paraesthesia [Unknown]
